FAERS Safety Report 6220980-1 (Version None)
Quarter: 2009Q2

REPORT INFORMATION
  Report Type: 
  Country: None (occurrence: None)
  Receive Date: 20090610
  Receipt Date: 20090603
  Transmission Date: 20091009
  Serious: Yes (Other)
  Sender: FDA-Public Use
  Company Number: B0576640A

PATIENT
  Age: 22 Year
  Sex: Female

DRUGS (2)
  1. ALLI [Suspect]
     Dosage: 3CAP PER DAY
     Route: 065
     Dates: start: 20090513, end: 20090528
  2. LEVONORGESTREL AND ETHINYL ESTRADIOL [Concomitant]
     Indication: CONTRACEPTION
     Dosage: 1CAP PER DAY
     Dates: end: 20090528

REACTIONS (1)
  - GENITAL HAEMORRHAGE [None]
